FAERS Safety Report 5927447-6 (Version None)
Quarter: 2008Q4

REPORT INFORMATION
  Report Type: 
  Country: None (occurrence: None)
  Receive Date: 20081022
  Receipt Date: 20081022
  Transmission Date: 20090506
  Serious: Yes (Life-Threatening, Other)
  Sender: FDA-Public Use
  Company Number: None

PATIENT
  Sex: Female
  Weight: 72.5755 kg

DRUGS (6)
  1. DIGOXIN TAB [Suspect]
     Indication: CARDIAC DISORDER
     Dosage: 0.25 MG ONE MORNING
     Dates: start: 20080506, end: 20080618
  2. DIGOXIN TAB [Suspect]
     Indication: HYPERTENSION
     Dosage: 0.25 MG ONE MORNING
     Dates: start: 20080506, end: 20080618
  3. DIGOXIN TAB [Suspect]
     Indication: CARDIAC DISORDER
     Dosage: 0.25 MG ONE MORNING
     Dates: start: 20080104
  4. DIGOXIN TAB [Suspect]
     Indication: HYPERTENSION
     Dosage: 0.25 MG ONE MORNING
     Dates: start: 20080104
  5. DIGOXIN TAB [Suspect]
     Indication: CARDIAC DISORDER
     Dosage: 0.25 MG ONE MORNING
     Dates: start: 20080422
  6. DIGOXIN TAB [Suspect]
     Indication: HYPERTENSION
     Dosage: 0.25 MG ONE MORNING
     Dates: start: 20080422

REACTIONS (7)
  - CARDIAC FAILURE CONGESTIVE [None]
  - GENERAL PHYSICAL HEALTH DETERIORATION [None]
  - HEART RATE DECREASED [None]
  - HEART RATE IRREGULAR [None]
  - HYPOTENSION [None]
  - INCORRECT DOSE ADMINISTERED [None]
  - PRODUCT QUALITY ISSUE [None]
